FAERS Safety Report 9865509 (Version 1)
Quarter: 2014Q1

REPORT INFORMATION
  Report Type: Spontaneous
  Country: US (occurrence: US)
  Receive Date: 20140203
  Receipt Date: 20140203
  Transmission Date: 20141002
  Serious: No
  Sender: FDA-Public Use
  Company Number: US-ALLERGAN-1308464US

PATIENT
  Age: 40 Year
  Sex: Male

DRUGS (5)
  1. RESTASIS [Suspect]
     Indication: DRY EYE
     Dosage: 2 GTT, BID
     Route: 047
     Dates: start: 20130604
  2. LEVOTHYROXINE [Concomitant]
     Indication: HYPOTHYROIDISM
     Dosage: UNK
  3. DISPROL [Concomitant]
     Indication: HYPERTENSION
     Dosage: UNK
  4. CRESTOR                            /01588601/ [Concomitant]
     Indication: HYPERCHOLESTEROLAEMIA
     Dosage: UNK
  5. ARTIFICIAL TEARS                   /00445101/ [Concomitant]
     Indication: EYE LUBRICATION THERAPY
     Dosage: UNK

REACTIONS (4)
  - Eye inflammation [Unknown]
  - Erythema [Unknown]
  - Eye swelling [Unknown]
  - Ocular hyperaemia [Unknown]
